FAERS Safety Report 22104680 (Version 2)
Quarter: 2023Q2

REPORT INFORMATION
  Report Type: Spontaneous
  Country: US (occurrence: US)
  Receive Date: 20230316
  Receipt Date: 20230524
  Transmission Date: 20230721
  Serious: Yes (Other)
  Sender: FDA-Public Use
  Company Number: US-BRISTOL-MYERS SQUIBB COMPANY-2023-036064

PATIENT
  Age: 68 Year
  Sex: Male

DRUGS (1)
  1. POMALYST [Suspect]
     Active Substance: POMALIDOMIDE
     Indication: Plasma cell myeloma
     Dosage: TAKE 1 CAPSULE BY MOUTH ONCE DAILY ON DAYS 1 THROUGH 21 OF 28 DAY CYCLE
     Route: 048
     Dates: start: 20230216

REACTIONS (3)
  - Thrombosis [Unknown]
  - Tunnel vision [Unknown]
  - Rash [Unknown]

NARRATIVE: CASE EVENT DATE: 20230510
